FAERS Safety Report 8169473-5 (Version None)
Quarter: 2012Q1

REPORT INFORMATION
  Report Type: 
  Country: None (occurrence: None)
  Receive Date: 20120104
  Receipt Date: 20111130
  Transmission Date: 20120608
  Serious: Yes (Hospitalization)
  Sender: FDA-Public Use
  Company Number: 2011HGS-002883

PATIENT
  Age: 42 Year
  Sex: Female
  Weight: 119.7496 kg

DRUGS (1)
  1. BENLYSTA [Suspect]
     Indication: SYSTEMIC LUPUS ERYTHEMATOSUS
     Dosage: 1 IN 14 D, INTRAVENOUS DRIP
     Route: 041
     Dates: start: 20111109, end: 20111109

REACTIONS (3)
  - PYREXIA [None]
  - MENINGITIS VIRAL [None]
  - BACK PAIN [None]
